FAERS Safety Report 18702330 (Version 1)
Quarter: 2021Q1

REPORT INFORMATION
  Report Type: Spontaneous
  Country: US (occurrence: US)
  Receive Date: 20210105
  Receipt Date: 20210105
  Transmission Date: 20210419
  Serious: No
  Sender: FDA-Public Use
  Company Number: US-PFIZER INC-2020518193

PATIENT
  Sex: Female

DRUGS (2)
  1. EMERGEN?C [Suspect]
     Active Substance: VITAMINS
     Dosage: UNK UNK, DAILY
     Dates: start: 20201218
  2. PROPANOLOL HCL [Interacting]
     Active Substance: PROPRANOLOL HYDROCHLORIDE

REACTIONS (4)
  - Peripheral swelling [Unknown]
  - Drug interaction [Unknown]
  - Poor quality product administered [Unknown]
  - Product colour issue [Unknown]
